FAERS Safety Report 5739487-0 (Version None)
Quarter: 2008Q2

REPORT INFORMATION
  Report Type: 
  Country: None (occurrence: None)
  Receive Date: 20080515
  Receipt Date: 20080507
  Transmission Date: 20081010
  Serious: Yes (Other)
  Sender: FDA-Public Use
  Company Number: PHHY2008AU07285

PATIENT
  Age: 41 Year
  Sex: Female
  Weight: 65 kg

DRUGS (3)
  1. RANI 2 [Concomitant]
  2. SOLONE [Concomitant]
  3. FAMVIR [Suspect]
     Indication: HERPES ZOSTER
     Dosage: 750 MG
     Route: 048
     Dates: start: 19990727, end: 19990804

REACTIONS (2)
  - FATIGUE [None]
  - HYPOKALAEMIA [None]
